FAERS Safety Report 9657913 (Version 2)
Quarter: 2013Q4

REPORT INFORMATION
  Report Type: Spontaneous
  Country: ES (occurrence: ES)
  Receive Date: 20131030
  Receipt Date: 20131030
  Transmission Date: 20140711
  Serious: Yes (Other)
  Sender: FDA-Public Use
  Company Number: ES-GILEAD-2013-0085967

PATIENT
  Age: 35 Year
  Sex: Male

DRUGS (1)
  1. EVIPLERA [Suspect]
     Indication: PRODUCT USED FOR UNKNOWN INDICATION

REACTIONS (1)
  - Blastocystis infection [Recovered/Resolved]
